FAERS Safety Report 19122760 (Version 2)
Quarter: 2021Q2

REPORT INFORMATION
  Report Type: Spontaneous
  Country: CN (occurrence: CN)
  Receive Date: 20210412
  Receipt Date: 20210415
  Transmission Date: 20210717
  Serious: Yes (Death, Hospitalization)
  Sender: FDA-Public Use
  Company Number: CN-BAYER-2021-120736

PATIENT
  Age: 70 Year
  Sex: Female

DRUGS (3)
  1. ULTRAVIST [Suspect]
     Active Substance: IOPROMIDE
     Indication: ANGIOGRAM
     Dosage: 150 ML, ONCE
     Route: 042
     Dates: start: 20210408, end: 20210408
  2. ULTRAVIST [Suspect]
     Active Substance: IOPROMIDE
     Indication: COMPUTERISED TOMOGRAM THORAX
  3. ULTRAVIST [Suspect]
     Active Substance: IOPROMIDE
     Indication: ANGIOCARDIOGRAM

REACTIONS (5)
  - Unresponsive to stimuli [None]
  - Altered state of consciousness [None]
  - Ventricular fibrillation [None]
  - Apnoea [None]
  - Contrast media allergy [Fatal]

NARRATIVE: CASE EVENT DATE: 20210408
